FAERS Safety Report 7818586-3 (Version None)
Quarter: 2011Q4

REPORT INFORMATION
  Report Type: 
  Country: None (occurrence: None)
  Receive Date: 20111017
  Receipt Date: 20110921
  Transmission Date: 20120403
  Serious: Yes (Hospitalization, Other)
  Sender: FDA-Public Use
  Company Number: US-BAXTER-2010BH002569

PATIENT
  Age: 58 Year
  Sex: Male
  Weight: 62 kg

DRUGS (212)
  1. HEPARIN SODIUM INJECTION [Suspect]
     Indication: CORONARY ANGIOPLASTY
     Route: 042
     Dates: start: 20071123, end: 20071123
  2. HEPARIN SODIUM INJECTION [Suspect]
     Route: 042
     Dates: start: 20071112, end: 20071112
  3. HEPARIN SODIUM INJECTION [Suspect]
     Route: 042
     Dates: start: 20080110, end: 20080110
  4. HEPARIN SODIUM INJECTION [Suspect]
     Route: 042
     Dates: start: 20071125, end: 20071127
  5. HEPARIN SODIUM INJECTION [Suspect]
     Route: 065
     Dates: start: 20080208, end: 20080208
  6. HEPARIN SODIUM INJECTION [Suspect]
     Route: 065
     Dates: start: 20080208, end: 20080208
  7. HEPARIN SODIUM INJECTION [Suspect]
     Route: 042
     Dates: start: 20081216, end: 20081216
  8. HEPARIN SODIUM 5,000 UNITS IN DEXTROSE 5% [Suspect]
     Route: 042
     Dates: start: 20071206, end: 20071206
  9. HEPARIN SODIUM 1,000 UNITS AND SODIUM CHLORIDE 0.9% [Suspect]
     Indication: CONTINUOUS HAEMODIAFILTRATION
     Route: 042
     Dates: start: 20071124, end: 20071124
  10. METFORMIN HYDROCHLORIDE [Concomitant]
     Indication: PRODUCT USED FOR UNKNOWN INDICATION
     Route: 065
  11. ATROPINE SULFATE [Concomitant]
     Indication: PRODUCT USED FOR UNKNOWN INDICATION
     Route: 065
     Dates: start: 20071101, end: 20071201
  12. CALCIUM CHLORIDE ^BIOTIKA^ [Concomitant]
     Indication: PRODUCT USED FOR UNKNOWN INDICATION
     Route: 065
     Dates: start: 20071101, end: 20071201
  13. AMICAR [Concomitant]
     Indication: PRODUCT USED FOR UNKNOWN INDICATION
     Route: 065
     Dates: start: 20071101, end: 20071201
  14. XYLOCAINE [Concomitant]
     Indication: PRODUCT USED FOR UNKNOWN INDICATION
     Route: 065
     Dates: start: 20071101, end: 20071201
  15. CARDIOPLEGIC [Concomitant]
     Indication: PRODUCT USED FOR UNKNOWN INDICATION
     Route: 065
     Dates: start: 20071101, end: 20071201
  16. PANTOPRAZOLE [Concomitant]
     Indication: PRODUCT USED FOR UNKNOWN INDICATION
     Route: 042
     Dates: start: 20071101, end: 20071201
  17. LANTUS [Concomitant]
     Indication: PRODUCT USED FOR UNKNOWN INDICATION
     Route: 065
     Dates: start: 20071101, end: 20071201
  18. PIPERACILLIN [Concomitant]
     Indication: PRODUCT USED FOR UNKNOWN INDICATION
     Route: 065
     Dates: start: 20071101, end: 20071201
  19. DEXTRAN 40 [Concomitant]
     Indication: PRODUCT USED FOR UNKNOWN INDICATION
     Route: 065
     Dates: start: 20071101, end: 20071201
  20. TYLENOL-500 [Concomitant]
     Indication: PRODUCT USED FOR UNKNOWN INDICATION
     Route: 065
     Dates: start: 20080110, end: 20080115
  21. GASTROVIST [Concomitant]
     Indication: PRODUCT USED FOR UNKNOWN INDICATION
     Route: 065
     Dates: start: 20080130, end: 20080202
  22. FENTANYL [Concomitant]
     Route: 065
     Dates: start: 20080130, end: 20080202
  23. HEPARIN SODIUM INJECTION [Suspect]
     Route: 042
     Dates: start: 20071112, end: 20071112
  24. HEPARIN SODIUM INJECTION [Suspect]
     Route: 042
     Dates: start: 20071125, end: 20071127
  25. HEPARIN SODIUM INJECTION [Suspect]
     Route: 042
     Dates: start: 20071125, end: 20071127
  26. HEPARIN SODIUM INJECTION [Suspect]
     Route: 040
     Dates: start: 20080208, end: 20080208
  27. HEPARIN SODIUM INJECTION [Suspect]
     Route: 040
     Dates: start: 20080208, end: 20080208
  28. HEPARIN SODIUM INJECTION [Suspect]
     Route: 042
     Dates: start: 20080407, end: 20080407
  29. HEPARIN SODIUM INJECTION [Suspect]
     Route: 042
     Dates: start: 20080407, end: 20080407
  30. HEPARIN SODIUM INJECTION [Suspect]
     Route: 065
     Dates: start: 20080208, end: 20080208
  31. HEPARIN SODIUM INJECTION [Suspect]
     Route: 065
     Dates: start: 20080208, end: 20080208
  32. HEPARIN SODIUM INJECTION [Suspect]
     Route: 065
     Dates: start: 20080208, end: 20080208
  33. HEPARIN SODIUM 5,000 UNITS IN DEXTROSE 5% [Suspect]
     Route: 042
     Dates: start: 20071208, end: 20071208
  34. HEPARIN SODIUM 5,000 UNITS IN DEXTROSE 5% [Suspect]
     Route: 042
     Dates: start: 20080130, end: 20080202
  35. HEPARIN SODIUM 5,000 UNITS IN DEXTROSE 5% [Suspect]
     Route: 042
     Dates: start: 20080130, end: 20080202
  36. HEPARIN SODIUM 5,000 UNITS IN DEXTROSE 5% [Suspect]
     Route: 042
     Dates: start: 20080206, end: 20080211
  37. HEPARIN SODIUM 1,000 UNITS AND SODIUM CHLORIDE 0.9% [Suspect]
     Route: 042
     Dates: start: 20071123, end: 20071123
  38. HEPARIN SODIUM 1,000 UNITS AND SODIUM CHLORIDE 0.9% [Suspect]
     Route: 042
     Dates: start: 20080110, end: 20080110
  39. CHLORHEXIDINE GLUCONATE [Concomitant]
     Indication: PRODUCT USED FOR UNKNOWN INDICATION
     Route: 065
     Dates: start: 20071101, end: 20071201
  40. ZOFRAN [Concomitant]
     Indication: NAUSEA
     Route: 042
  41. MIDAZOLAM HCL [Concomitant]
     Indication: SURGERY
     Route: 065
     Dates: start: 20080110, end: 20080115
  42. STARLIX [Concomitant]
     Indication: PRODUCT USED FOR UNKNOWN INDICATION
     Route: 048
     Dates: start: 20080110, end: 20080115
  43. AMIODARONE HCL [Concomitant]
     Route: 065
     Dates: start: 20080130, end: 20080202
  44. NAPROXEN [Concomitant]
     Indication: PRODUCT USED FOR UNKNOWN INDICATION
     Route: 065
  45. ZETIA [Concomitant]
     Indication: PRODUCT USED FOR UNKNOWN INDICATION
     Route: 065
  46. HEPARIN SODIUM INJECTION [Suspect]
     Route: 042
     Dates: start: 20080110, end: 20080110
  47. HEPARIN SODIUM INJECTION [Suspect]
     Route: 065
     Dates: start: 20071126, end: 20071126
  48. HEPARIN SODIUM INJECTION [Suspect]
     Route: 065
     Dates: start: 20071126, end: 20071126
  49. HEPARIN SODIUM INJECTION [Suspect]
     Route: 042
     Dates: start: 20080122, end: 20080122
  50. HEPARIN SODIUM INJECTION [Suspect]
     Route: 040
     Dates: start: 20080208, end: 20080208
  51. HEPARIN SODIUM INJECTION [Suspect]
     Route: 040
     Dates: start: 20080208, end: 20080208
  52. HEPARIN SODIUM INJECTION [Suspect]
     Route: 042
     Dates: start: 20080407, end: 20080407
  53. HEPARIN SODIUM INJECTION [Suspect]
     Route: 042
     Dates: start: 20081216, end: 20081216
  54. HEPARIN SODIUM INJECTION [Suspect]
     Route: 042
     Dates: start: 20080130, end: 20080130
  55. HEPARIN SODIUM 5,000 UNITS IN DEXTROSE 5% [Suspect]
     Route: 042
     Dates: start: 20071204, end: 20071204
  56. HEPARIN SODIUM 5,000 UNITS IN DEXTROSE 5% [Suspect]
     Route: 042
     Dates: start: 20071204, end: 20071204
  57. HEPARIN SODIUM 5,000 UNITS IN DEXTROSE 5% [Suspect]
     Route: 042
     Dates: start: 20071208, end: 20071208
  58. HEPARIN SODIUM 1,000 UNITS AND SODIUM CHLORIDE 0.9% [Suspect]
     Route: 042
     Dates: start: 20080110, end: 20080110
  59. HEPARIN SODIUM 1,000 UNITS AND SODIUM CHLORIDE 0.9% [Suspect]
     Route: 042
     Dates: start: 20080208, end: 20080208
  60. HEPARIN SODIUM 1,000 UNITS AND SODIUM CHLORIDE 0.9% [Suspect]
     Route: 042
     Dates: start: 20080208, end: 20080208
  61. HEPARIN SODIUM 1,000 UNITS AND SODIUM CHLORIDE 0.9% [Suspect]
     Route: 042
     Dates: start: 20071125, end: 20071127
  62. CARDIZEM [Concomitant]
     Indication: PRODUCT USED FOR UNKNOWN INDICATION
     Route: 065
  63. VANCOMYCIN HYCHLORIDE [Concomitant]
     Indication: SURGERY
     Route: 065
     Dates: start: 20071101, end: 20071201
  64. CANDESARTAN CILEXETIL [Concomitant]
     Indication: PRODUCT USED FOR UNKNOWN INDICATION
     Route: 065
     Dates: start: 20071101, end: 20071201
  65. PROTAMINE SULFATE [Concomitant]
     Indication: PRODUCT USED FOR UNKNOWN INDICATION
     Route: 065
     Dates: start: 20071101, end: 20071201
  66. PHENYLEPHRINE HCL [Concomitant]
     Indication: PRODUCT USED FOR UNKNOWN INDICATION
     Route: 065
     Dates: start: 20071101, end: 20071201
  67. XANAX [Concomitant]
     Indication: PRODUCT USED FOR UNKNOWN INDICATION
     Route: 065
     Dates: start: 20071101, end: 20071201
  68. ERTAPENEM [Concomitant]
     Indication: PRODUCT USED FOR UNKNOWN INDICATION
     Route: 042
     Dates: start: 20071101, end: 20071201
  69. VERSED [Concomitant]
     Indication: PRODUCT USED FOR UNKNOWN INDICATION
     Route: 042
     Dates: start: 20071101, end: 20071201
  70. TOBRAMYCIN [Concomitant]
     Indication: PRODUCT USED FOR UNKNOWN INDICATION
     Route: 065
     Dates: start: 20071101, end: 20071201
  71. NEURONTIN [Concomitant]
     Indication: PAIN IN EXTREMITY
     Route: 065
  72. AMBIEN [Concomitant]
     Indication: PRODUCT USED FOR UNKNOWN INDICATION
     Route: 065
     Dates: start: 20080110, end: 20080115
  73. DIFLUCAN [Concomitant]
     Indication: PRODUCT USED FOR UNKNOWN INDICATION
     Route: 065
     Dates: start: 20080110, end: 20080115
  74. POTASSIUM CHLORIDE [Concomitant]
     Indication: PRODUCT USED FOR UNKNOWN INDICATION
     Route: 065
     Dates: start: 20080130, end: 20080202
  75. MAGNESIUM SULFATE [Concomitant]
     Indication: PRODUCT USED FOR UNKNOWN INDICATION
     Route: 065
     Dates: start: 20080130, end: 20080202
  76. ACETAZOLAMIDE [Concomitant]
     Indication: PRODUCT USED FOR UNKNOWN INDICATION
     Route: 065
     Dates: start: 20080130, end: 20080202
  77. CEFTIN [Concomitant]
     Indication: PRODUCT USED FOR UNKNOWN INDICATION
     Route: 065
  78. HEPARIN SODIUM INJECTION [Suspect]
     Route: 042
     Dates: start: 20071112, end: 20071112
  79. HEPARIN SODIUM INJECTION [Suspect]
     Route: 042
     Dates: start: 20071112, end: 20071112
  80. HEPARIN SODIUM INJECTION [Suspect]
     Route: 042
     Dates: start: 20071112, end: 20071112
  81. HEPARIN SODIUM INJECTION [Suspect]
     Route: 042
     Dates: start: 20071123, end: 20071123
  82. HEPARIN SODIUM INJECTION [Suspect]
     Route: 065
     Dates: start: 20071126, end: 20071126
  83. HEPARIN SODIUM INJECTION [Suspect]
     Route: 042
     Dates: start: 20080122, end: 20080122
  84. HEPARIN SODIUM INJECTION [Suspect]
     Route: 042
     Dates: start: 20071125, end: 20071127
  85. HEPARIN SODIUM INJECTION [Suspect]
     Route: 040
     Dates: start: 20080208, end: 20080208
  86. HEPARIN SODIUM INJECTION [Suspect]
     Route: 042
     Dates: start: 20080407, end: 20080407
  87. HEPARIN SODIUM INJECTION [Suspect]
     Route: 042
     Dates: start: 20081216, end: 20081216
  88. HEPARIN SODIUM INJECTION [Suspect]
     Route: 042
     Dates: start: 20080130, end: 20080130
  89. HEPARIN SODIUM INJECTION [Suspect]
     Route: 042
     Dates: start: 20080130, end: 20080130
  90. HEPARIN SODIUM 5,000 UNITS IN DEXTROSE 5% [Suspect]
     Indication: CONTINUOUS HAEMODIAFILTRATION
     Route: 042
     Dates: start: 20071118, end: 20071121
  91. HEPARIN SODIUM 5,000 UNITS IN DEXTROSE 5% [Suspect]
     Route: 042
     Dates: start: 20071206, end: 20071206
  92. NITROGLYCERIN [Concomitant]
     Indication: PRODUCT USED FOR UNKNOWN INDICATION
     Route: 060
  93. TOPROL-XL [Concomitant]
     Indication: PRODUCT USED FOR UNKNOWN INDICATION
     Route: 065
  94. AMIODARONE HCL [Concomitant]
     Indication: PRODUCT USED FOR UNKNOWN INDICATION
     Route: 065
  95. FENTANYL [Concomitant]
     Indication: PRODUCT USED FOR UNKNOWN INDICATION
     Route: 065
     Dates: start: 20071101, end: 20071201
  96. EPOPROSTENOL SODIUM [Concomitant]
     Indication: PRODUCT USED FOR UNKNOWN INDICATION
     Route: 065
     Dates: start: 20071101, end: 20071201
  97. NOVOLOG [Concomitant]
     Indication: PRODUCT USED FOR UNKNOWN INDICATION
     Route: 065
  98. PANTOPRAZOLE [Concomitant]
     Route: 048
     Dates: start: 20080130, end: 20080202
  99. BUMETANIDE [Concomitant]
     Indication: PRODUCT USED FOR UNKNOWN INDICATION
     Route: 065
     Dates: start: 20080130, end: 20080202
  100. HEPARIN SODIUM INJECTION [Suspect]
     Indication: INTRAVENOUS CATHETER MANAGEMENT
     Route: 042
     Dates: start: 20071123, end: 20071123
  101. HEPARIN SODIUM INJECTION [Suspect]
     Route: 042
     Dates: start: 20071112, end: 20071112
  102. HEPARIN SODIUM INJECTION [Suspect]
     Route: 042
     Dates: start: 20071123, end: 20071123
  103. HEPARIN SODIUM INJECTION [Suspect]
     Route: 042
     Dates: start: 20080110, end: 20080110
  104. HEPARIN SODIUM INJECTION [Suspect]
     Route: 065
     Dates: start: 20071126, end: 20071126
  105. HEPARIN SODIUM INJECTION [Suspect]
     Route: 065
     Dates: start: 20071126, end: 20071126
  106. HEPARIN SODIUM INJECTION [Suspect]
     Route: 065
     Dates: start: 20071126, end: 20071126
  107. HEPARIN SODIUM INJECTION [Suspect]
     Route: 042
     Dates: start: 20080122, end: 20080122
  108. HEPARIN SODIUM INJECTION [Suspect]
     Route: 042
     Dates: start: 20080122, end: 20080122
  109. HEPARIN SODIUM INJECTION [Suspect]
     Route: 042
     Dates: start: 20080407, end: 20080407
  110. HEPARIN SODIUM INJECTION [Suspect]
     Route: 042
     Dates: start: 20080130, end: 20080130
  111. HEPARIN SODIUM 5,000 UNITS IN DEXTROSE 5% [Suspect]
     Route: 042
     Dates: start: 20080130, end: 20080202
  112. HEPARIN SODIUM 5,000 UNITS IN DEXTROSE 5% [Suspect]
     Route: 042
     Dates: start: 20080206, end: 20080211
  113. HEPARIN SODIUM 1,000 UNITS AND SODIUM CHLORIDE 0.9% [Suspect]
     Route: 042
     Dates: start: 20071126, end: 20071126
  114. GLUCAGON [Concomitant]
     Indication: PRODUCT USED FOR UNKNOWN INDICATION
     Route: 065
  115. BENICAR [Concomitant]
     Indication: PRODUCT USED FOR UNKNOWN INDICATION
     Route: 065
  116. EPINEPHRINE [Concomitant]
     Indication: PRODUCT USED FOR UNKNOWN INDICATION
     Route: 065
     Dates: start: 20071101, end: 20071201
  117. MANNITOL [Concomitant]
     Indication: PRODUCT USED FOR UNKNOWN INDICATION
     Route: 065
     Dates: start: 20071101, end: 20071201
  118. FORANE [Concomitant]
     Indication: ANAESTHESIA
     Route: 065
     Dates: start: 20071101, end: 20071201
  119. HYDROCORTISONE SODIUM SUCCINATE [Concomitant]
     Indication: PRODUCT USED FOR UNKNOWN INDICATION
     Route: 042
     Dates: start: 20071101, end: 20071201
  120. PRAVASTATIN [Concomitant]
     Indication: PRODUCT USED FOR UNKNOWN INDICATION
     Route: 065
     Dates: start: 20071101, end: 20071201
  121. ATIVAN [Concomitant]
     Indication: PRODUCT USED FOR UNKNOWN INDICATION
     Route: 065
     Dates: start: 20071101, end: 20071201
  122. COLACE [Concomitant]
     Indication: PRODUCT USED FOR UNKNOWN INDICATION
     Route: 065
     Dates: start: 20071101, end: 20071201
  123. ATROVENT [Concomitant]
     Indication: RESPIRATORY DISORDER
     Route: 065
     Dates: start: 20071101, end: 20071201
  124. ACETAMINOPHEN W/ PROPOXYPHENE HCL [Concomitant]
     Indication: PRODUCT USED FOR UNKNOWN INDICATION
     Route: 065
  125. GUAIFENESIN [Concomitant]
     Indication: PRODUCT USED FOR UNKNOWN INDICATION
     Route: 065
     Dates: start: 20080130, end: 20080202
  126. VYTORIN [Concomitant]
     Indication: PRODUCT USED FOR UNKNOWN INDICATION
     Route: 048
  127. PAPAVERINE [Concomitant]
     Indication: PRODUCT USED FOR UNKNOWN INDICATION
     Route: 065
  128. CASPOFUNGIN ACETATE [Concomitant]
     Indication: PRODUCT USED FOR UNKNOWN INDICATION
     Route: 042
  129. HEPARIN SODIUM INJECTION [Suspect]
     Route: 042
     Dates: start: 20071112, end: 20071112
  130. HEPARIN SODIUM INJECTION [Suspect]
     Route: 042
     Dates: start: 20071123, end: 20071123
  131. HEPARIN SODIUM INJECTION [Suspect]
     Route: 042
     Dates: start: 20071123, end: 20071123
  132. HEPARIN SODIUM INJECTION [Suspect]
     Route: 042
     Dates: start: 20071123, end: 20071123
  133. HEPARIN SODIUM INJECTION [Suspect]
     Route: 042
     Dates: start: 20080110, end: 20080110
  134. HEPARIN SODIUM INJECTION [Suspect]
     Route: 042
     Dates: start: 20080110, end: 20080110
  135. HEPARIN SODIUM INJECTION [Suspect]
     Route: 042
     Dates: start: 20071125, end: 20071127
  136. HEPARIN SODIUM INJECTION [Suspect]
     Route: 042
     Dates: start: 20080407, end: 20080407
  137. HEPARIN SODIUM INJECTION [Suspect]
     Route: 042
     Dates: start: 20080407, end: 20080407
  138. HEPARIN SODIUM INJECTION [Suspect]
     Route: 065
     Dates: start: 20080208, end: 20080208
  139. HEPARIN SODIUM INJECTION [Suspect]
     Route: 042
     Dates: start: 20081216, end: 20081216
  140. HEPARIN SODIUM INJECTION [Suspect]
     Route: 042
     Dates: start: 20081216, end: 20081216
  141. HEPARIN SODIUM 5,000 UNITS IN DEXTROSE 5% [Suspect]
     Indication: CATHETERISATION CARDIAC
     Route: 042
     Dates: start: 20071118, end: 20071121
  142. HEPARIN SODIUM 1,000 UNITS AND SODIUM CHLORIDE 0.9% [Suspect]
     Route: 042
     Dates: start: 20071126, end: 20071126
  143. HEPARIN SODIUM 1,000 UNITS AND SODIUM CHLORIDE 0.9% [Suspect]
     Route: 042
     Dates: start: 20071123, end: 20071123
  144. HEPARIN SODIUM INJECTION [Suspect]
     Route: 042
     Dates: start: 20080204, end: 20080221
  145. ACETAMINOPHEN AND HYDROCODONE BITARTRATE [Concomitant]
     Indication: PRODUCT USED FOR UNKNOWN INDICATION
     Route: 065
  146. ISOSORBIDE MONONITRATE [Concomitant]
     Indication: PRODUCT USED FOR UNKNOWN INDICATION
     Route: 065
     Dates: start: 20071101, end: 20071201
  147. THROMBOGEN [Concomitant]
     Indication: PRODUCT USED FOR UNKNOWN INDICATION
     Route: 061
     Dates: start: 20071101, end: 20071201
  148. MORPHINE SULFATE [Concomitant]
     Indication: PRODUCT USED FOR UNKNOWN INDICATION
     Route: 065
     Dates: start: 20071101, end: 20071201
  149. DIGOXIN [Concomitant]
     Indication: PRODUCT USED FOR UNKNOWN INDICATION
     Route: 065
     Dates: start: 20071101, end: 20071201
  150. MILRINONE [Concomitant]
     Indication: PRODUCT USED FOR UNKNOWN INDICATION
     Route: 065
     Dates: start: 20071101, end: 20071201
  151. HYDROCORTISONE [Concomitant]
     Indication: PRODUCT USED FOR UNKNOWN INDICATION
     Route: 042
     Dates: start: 20071101, end: 20071201
  152. FLUCONAZOLE [Concomitant]
     Indication: PRODUCT USED FOR UNKNOWN INDICATION
     Route: 042
     Dates: start: 20071101, end: 20071201
  153. ALBUTEROL [Concomitant]
     Indication: RESPIRATORY DISORDER
     Route: 065
     Dates: start: 20071101, end: 20071201
  154. POTASSIUM CHLORIDE [Concomitant]
     Indication: PRODUCT USED FOR UNKNOWN INDICATION
     Route: 042
     Dates: start: 20071101, end: 20071201
  155. FACTOR VIIA [Concomitant]
     Indication: PRODUCT USED FOR UNKNOWN INDICATION
     Route: 065
     Dates: start: 20071101, end: 20071201
  156. BENADRYL ^WARNER-LAMBERT^               /USA/ [Concomitant]
     Indication: PRODUCT USED FOR UNKNOWN INDICATION
     Route: 065
     Dates: start: 20080110, end: 20080115
  157. PREGABALIN [Concomitant]
     Indication: PRODUCT USED FOR UNKNOWN INDICATION
     Route: 065
     Dates: start: 20080110, end: 20080115
  158. ISOSORBIDE MONONITRATE [Concomitant]
     Route: 065
     Dates: start: 20080110, end: 20080115
  159. AMIODARONE HCL [Concomitant]
     Route: 065
     Dates: start: 20080130, end: 20080202
  160. MAGNESIUM SULFATE [Concomitant]
     Route: 065
  161. HEPARIN SODIUM INJECTION [Suspect]
     Indication: CORONARY ARTERY BYPASS
     Route: 042
     Dates: start: 20071123, end: 20071123
  162. HEPARIN SODIUM INJECTION [Suspect]
     Indication: ARTERIOGRAM CORONARY
     Route: 042
     Dates: start: 20071123, end: 20071123
  163. HEPARIN SODIUM INJECTION [Suspect]
     Route: 042
     Dates: start: 20080110, end: 20080110
  164. HEPARIN SODIUM INJECTION [Suspect]
     Route: 042
     Dates: start: 20080122, end: 20080122
  165. HEPARIN SODIUM INJECTION [Suspect]
     Route: 042
     Dates: start: 20080122, end: 20080122
  166. HEPARIN SODIUM INJECTION [Suspect]
     Route: 042
     Dates: start: 20071125, end: 20071127
  167. HEPARIN SODIUM INJECTION [Suspect]
     Route: 040
     Dates: start: 20080208, end: 20080208
  168. HEPARIN SODIUM INJECTION [Suspect]
     Route: 065
     Dates: start: 20080208, end: 20080208
  169. HEPARIN SODIUM INJECTION [Suspect]
     Route: 042
     Dates: start: 20081216, end: 20081216
  170. HEPARIN SODIUM INJECTION [Suspect]
     Route: 042
     Dates: start: 20080130, end: 20080130
  171. HEPARIN SODIUM 5,000 UNITS IN DEXTROSE 5% [Suspect]
     Indication: THROMBOSIS PROPHYLAXIS
     Route: 042
     Dates: start: 20071118, end: 20071121
  172. EPHEDRINE SUL CAP [Concomitant]
     Indication: PRODUCT USED FOR UNKNOWN INDICATION
     Route: 065
     Dates: start: 20071101, end: 20071201
  173. ETOMIDATE [Concomitant]
     Indication: PRODUCT USED FOR UNKNOWN INDICATION
     Route: 065
     Dates: start: 20071101, end: 20071201
  174. PANCURONIUM [Concomitant]
     Indication: PRODUCT USED FOR UNKNOWN INDICATION
     Route: 065
     Dates: start: 20071101, end: 20071201
  175. PLEGISOL [Concomitant]
     Indication: PRODUCT USED FOR UNKNOWN INDICATION
     Route: 065
     Dates: start: 20071101, end: 20071201
  176. SODIUM CHLORIDE INJ [Concomitant]
     Indication: PRODUCT USED FOR UNKNOWN INDICATION
     Route: 065
     Dates: start: 20071101, end: 20071201
  177. SODIUM BICARBONATE [Concomitant]
     Indication: PRODUCT USED FOR UNKNOWN INDICATION
     Route: 065
     Dates: start: 20071101, end: 20071201
  178. VASOPRESSIN INJECTION [Concomitant]
     Indication: BLOOD PRESSURE MANAGEMENT
     Route: 042
  179. ALTACE [Concomitant]
     Indication: PRODUCT USED FOR UNKNOWN INDICATION
     Route: 065
     Dates: start: 20071101, end: 20071201
  180. ALBUTEIN [Concomitant]
     Indication: PRODUCT USED FOR UNKNOWN INDICATION
     Route: 042
     Dates: start: 20071101, end: 20071201
  181. DOPAMINE HCL [Concomitant]
     Indication: BLOOD PRESSURE
     Route: 065
     Dates: start: 20071101, end: 20071201
  182. DULCOLAX [Concomitant]
     Indication: PRODUCT USED FOR UNKNOWN INDICATION
     Route: 065
     Dates: start: 20071101, end: 20071201
  183. LEVAQUIN [Concomitant]
     Indication: PRODUCT USED FOR UNKNOWN INDICATION
     Route: 065
     Dates: start: 20080130, end: 20080202
  184. MAGNESIUM OXIDE [Concomitant]
     Indication: PRODUCT USED FOR UNKNOWN INDICATION
     Route: 065
     Dates: start: 20080130, end: 20080202
  185. HEPARIN SODIUM INJECTION [Suspect]
     Indication: CARDIAC ANEURYSM REPAIR
     Route: 042
     Dates: start: 20071123, end: 20071123
  186. HEPARIN SODIUM INJECTION [Suspect]
     Indication: IMPLANTABLE DEFIBRILLATOR INSERTION
     Route: 042
     Dates: start: 20071123, end: 20071123
  187. HEPARIN SODIUM INJECTION [Suspect]
     Indication: CATHETERISATION CARDIAC
     Route: 042
     Dates: start: 20071123, end: 20071123
  188. HEPARIN SODIUM INJECTION [Suspect]
     Route: 042
     Dates: start: 20071123, end: 20071123
  189. HEPARIN SODIUM INJECTION [Suspect]
     Route: 042
     Dates: start: 20071123, end: 20071123
  190. HEPARIN SODIUM INJECTION [Suspect]
     Route: 042
     Dates: start: 20080110, end: 20080110
  191. HEPARIN SODIUM INJECTION [Suspect]
     Route: 065
     Dates: start: 20071126, end: 20071126
  192. HEPARIN SODIUM INJECTION [Suspect]
     Route: 042
     Dates: start: 20080122, end: 20080122
  193. HEPARIN SODIUM INJECTION [Suspect]
     Route: 042
     Dates: start: 20071125, end: 20071127
  194. HEPARIN SODIUM INJECTION [Suspect]
     Route: 040
     Dates: start: 20080208, end: 20080208
  195. HEPARIN SODIUM INJECTION [Suspect]
     Route: 042
     Dates: start: 20081216, end: 20081216
  196. HEPARIN SODIUM INJECTION [Suspect]
     Route: 042
     Dates: start: 20080130, end: 20080130
  197. HEPARIN SODIUM INJECTION [Suspect]
     Route: 042
     Dates: start: 20080130, end: 20080130
  198. HEPARIN SODIUM 5,000 UNITS IN DEXTROSE 5% [Suspect]
     Route: 042
     Dates: start: 20071204, end: 20071204
  199. HEPARIN SODIUM 5,000 UNITS IN DEXTROSE 5% [Suspect]
     Route: 042
     Dates: start: 20071206, end: 20071206
  200. HEPARIN SODIUM 5,000 UNITS IN DEXTROSE 5% [Suspect]
     Route: 042
     Dates: start: 20071208, end: 20071208
  201. HEPARIN SODIUM 5,000 UNITS IN DEXTROSE 5% [Suspect]
     Route: 042
     Dates: start: 20080206, end: 20080211
  202. HEPARIN SODIUM 1,000 UNITS AND SODIUM CHLORIDE 0.9% [Suspect]
     Indication: INTRAVENOUS CATHETER MANAGEMENT
     Route: 042
     Dates: start: 20071124, end: 20071124
  203. HEPARIN SODIUM 1,000 UNITS AND SODIUM CHLORIDE 0.9% [Suspect]
     Route: 042
     Dates: start: 20071214, end: 20071214
  204. COREG [Concomitant]
     Indication: PRODUCT USED FOR UNKNOWN INDICATION
  205. CEFEPIME [Concomitant]
     Indication: PRODUCT USED FOR UNKNOWN INDICATION
     Route: 065
     Dates: start: 20071101, end: 20071201
  206. ASPIRIN [Concomitant]
     Indication: PRODUCT USED FOR UNKNOWN INDICATION
     Route: 065
     Dates: start: 20071101, end: 20071201
  207. SOLU-MEDROL [Concomitant]
     Indication: PRODUCT USED FOR UNKNOWN INDICATION
     Route: 065
     Dates: start: 20071101, end: 20071201
  208. FENTANYL [Concomitant]
     Route: 065
     Dates: start: 20080110, end: 20080115
  209. LASIX [Concomitant]
     Indication: PRODUCT USED FOR UNKNOWN INDICATION
     Route: 065
     Dates: start: 20080110, end: 20080115
  210. CALCIUM MAGNESIUM ZINC [Concomitant]
     Indication: PRODUCT USED FOR UNKNOWN INDICATION
     Route: 065
     Dates: start: 20080110, end: 20080115
  211. METOCLOPRAMIDE [Concomitant]
     Indication: PRODUCT USED FOR UNKNOWN INDICATION
     Route: 065
     Dates: start: 20080130, end: 20080202
  212. NOREPINEPHRINE BITARTRATE [Concomitant]
     Indication: PRODUCT USED FOR UNKNOWN INDICATION
     Route: 065
     Dates: start: 20080130, end: 20080202

REACTIONS (36)
  - CARDIAC ANEURYSM [None]
  - PNEUMONIA KLEBSIELLA [None]
  - CARDIORENAL SYNDROME [None]
  - PERIPHERAL VASCULAR DISORDER [None]
  - MORTON'S NEUROMA [None]
  - INCISIONAL HERNIA, OBSTRUCTIVE [None]
  - DYSPNOEA [None]
  - GANGRENE [None]
  - GASTRITIS EROSIVE [None]
  - GASTRIC ULCER [None]
  - ILEUS PARALYTIC [None]
  - PLATELET COUNT DECREASED [None]
  - CONFUSIONAL STATE [None]
  - VENTRICULAR TACHYCARDIA [None]
  - PULMONARY OEDEMA [None]
  - ASTHENIA [None]
  - CARDIOGENIC SHOCK [None]
  - HYPOTENSION [None]
  - EPISTAXIS [None]
  - HAEMATEMESIS [None]
  - SEPSIS [None]
  - ENTEROBACTER PNEUMONIA [None]
  - NEUROPATHY PERIPHERAL [None]
  - ACUTE RESPIRATORY FAILURE [None]
  - SYSTEMIC INFLAMMATORY RESPONSE SYNDROME [None]
  - PLEURAL EFFUSION [None]
  - DECUBITUS ULCER [None]
  - MELAENA [None]
  - ATRIAL FIBRILLATION [None]
  - RENAL FAILURE ACUTE [None]
  - SKIN ULCER [None]
  - PAIN IN EXTREMITY [None]
  - PYREXIA [None]
  - SYSTEMIC CANDIDA [None]
  - CARDIOMEGALY [None]
  - ANAEMIA [None]
